FAERS Safety Report 15740515 (Version 1)
Quarter: 2018Q4

REPORT INFORMATION
  Report Type: Report from Study
  Country: DE (occurrence: DE)
  Receive Date: 20181219
  Receipt Date: 20181219
  Transmission Date: 20190205
  Serious: Yes (Hospitalization)
  Sender: FDA-Public Use
  Company Number: DE-ROCHE-2230628

PATIENT
  Age: 30 Year
  Sex: Female
  Weight: 53 kg

DRUGS (13)
  1. CARBOPLATIN. [Suspect]
     Active Substance: CARBOPLATIN
     Indication: MALIGNANT PERITONEAL NEOPLASM
     Dosage: AT A DOSE TO ACHIEVE A TARGET AREA UNDER THE CURVE (AUC) OF 6 MILLIGRAMS PER MILLILITER*MINUTE (MG/M
     Route: 042
     Dates: start: 20180306
  2. ASPIRIN. [Concomitant]
     Active Substance: ASPIRIN
     Route: 065
     Dates: start: 201801
  3. TAVOR (LORAZEPAM) [Concomitant]
     Active Substance: LORAZEPAM
     Route: 065
     Dates: start: 20180305
  4. PACLITAXEL. [Suspect]
     Active Substance: PACLITAXEL
     Indication: MALIGNANT PERITONEAL NEOPLASM
     Dosage: DATE OF MOST RECENT DOSE OF PACLITAXEL (266 MG) ADMINISTERED PRIOR TO EVENT ONSET: 10/JUL/2018
     Route: 042
     Dates: start: 20180306
  5. PARENTERAL NUTRITION [Concomitant]
     Active Substance: AMINO ACIDS\DEXTROSE\ELECTROLYTES NOS
     Indication: GASTRIC STENOSIS
     Route: 065
     Dates: start: 20180413
  6. RESOLOR [Concomitant]
     Active Substance: PRUCALOPRIDE SUCCINATE
     Route: 065
     Dates: start: 20180618
  7. MIRTAZAPIN [Concomitant]
     Active Substance: MIRTAZAPINE
     Indication: DEPRESSION
     Route: 065
     Dates: start: 20180710
  8. VITAMINE D [Concomitant]
     Route: 065
     Dates: start: 201805
  9. METOCLOPRAMIDE. [Concomitant]
     Active Substance: METOCLOPRAMIDE
     Route: 065
     Dates: start: 201802
  10. ATEZOLIZUMAB. [Suspect]
     Active Substance: ATEZOLIZUMAB
     Indication: MALIGNANT PERITONEAL NEOPLASM
     Dosage: DATE OF MOST RECENT DOSE OF ATEZOLIZUMAB ADMINISTERED PRIOR TO EVENT ONSET: 31/OCT/2018
     Route: 042
     Dates: start: 20180306
  11. ESTRADIOL. [Concomitant]
     Active Substance: ESTRADIOL
     Indication: HORMONE REPLACEMENT THERAPY
     Route: 065
     Dates: start: 201801
  12. PANTOPRAZOL [Concomitant]
     Active Substance: PANTOPRAZOLE SODIUM
     Route: 065
     Dates: start: 201801
  13. BEVACIZUMAB. [Suspect]
     Active Substance: BEVACIZUMAB
     Indication: MALIGNANT PERITONEAL NEOPLASM
     Dosage: DATE OF MOST RECENT DOSE OF BEVACIZUMAB (765 MG) ADMINISTERED PRIOR TO EVENT ONSET: 31/OCT/2018
     Route: 042
     Dates: start: 20180327

REACTIONS (1)
  - Abdominal mass [Recovering/Resolving]

NARRATIVE: CASE EVENT DATE: 20181212
